FAERS Safety Report 8446099-7 (Version None)
Quarter: 2012Q2

REPORT INFORMATION
  Report Type: 
  Country: None (occurrence: None)
  Receive Date: 20120618
  Receipt Date: 20120615
  Transmission Date: 20120825
  Serious: Yes (Death)
  Sender: FDA-Public Use
  Company Number: TW-ABBOTT-12P-153-0906774-00

PATIENT
  Sex: Male
  Weight: 65 kg

DRUGS (5)
  1. CIMETIDINE [Concomitant]
     Indication: PRODUCT USED FOR UNKNOWN INDICATION
     Dates: start: 20110718, end: 20120118
  2. ACETAMINOPHEN [Concomitant]
     Indication: PRODUCT USED FOR UNKNOWN INDICATION
  3. ULTRACT [Concomitant]
     Indication: PRODUCT USED FOR UNKNOWN INDICATION
     Dosage: 1 EVERY 2 WEEKS
     Dates: start: 20120118, end: 20120201
  4. HUMIRA [Suspect]
     Indication: PSORIASIS
     Dates: start: 20100718, end: 20120111
  5. CELECOXIB [Concomitant]
     Indication: PRODUCT USED FOR UNKNOWN INDICATION
     Dates: start: 20110718, end: 20120118

REACTIONS (1)
  - ROAD TRAFFIC ACCIDENT [None]
